FAERS Safety Report 13075251 (Version 1)
Quarter: 2016Q4

REPORT INFORMATION
  Report Type: Spontaneous
  Country: DE (occurrence: DE)
  Receive Date: 20161230
  Receipt Date: 20161230
  Transmission Date: 20170207
  Serious: Yes (Other)
  Sender: FDA-Public Use
  Company Number: DE-TEVA-722799GER

PATIENT
  Age: 63 Year
  Sex: Male

DRUGS (3)
  1. ADVAGRAF [Suspect]
     Active Substance: TACROLIMUS
     Route: 065
  2. CERTICAN [Suspect]
     Active Substance: EVEROLIMUS
     Route: 065
  3. PRAVASTATIN-RATIOPHARM 40 MG TABLETTEN [Suspect]
     Active Substance: PRAVASTATIN
     Dosage: 40 MILLIGRAM DAILY; 40 MG DAILY IN THE EVENING
     Route: 048

REACTIONS (8)
  - Depression [Unknown]
  - Scab [Not Recovered/Not Resolved]
  - Blood pressure increased [Recovered/Resolved]
  - Skin cancer [Not Recovered/Not Resolved]
  - Blood glucose abnormal [Unknown]
  - Dry skin [Not Recovered/Not Resolved]
  - Insomnia [Recovering/Resolving]
  - Headache [Unknown]
